FAERS Safety Report 4463615-0 (Version None)
Quarter: 2004Q3

REPORT INFORMATION
  Report Type: 
  Country: None (occurrence: None)
  Receive Date: 20040930
  Receipt Date: 20040915
  Transmission Date: 20050211
  Serious: Yes (Death)
  Sender: FDA-Public Use
  Company Number: 2004S1002762

PATIENT
  Age: 75 Year
  Sex: Male

DRUGS (2)
  1. CLOZAPINE [Suspect]
     Indication: SCHIZOPHRENIA
     Dosage: 75MG QD, ORAL
     Route: 048
     Dates: start: 20011101
  2. LACTULOSE [Concomitant]

REACTIONS (1)
  - DEATH [None]
